FAERS Safety Report 10418625 (Version 2)
Quarter: 2014Q4

REPORT INFORMATION
  Report Type: Spontaneous
  Country: GB (occurrence: GB)
  Receive Date: 20140829
  Receipt Date: 20141016
  Transmission Date: 20150528
  Serious: Yes (Other)
  Sender: FDA-Public Use
  Company Number: PHHY2014GB105105

PATIENT
  Age: 34 Year
  Sex: Female

DRUGS (1)
  1. RISPERIDONE. [Suspect]
     Active Substance: RISPERIDONE
     Indication: PRODUCT USED FOR UNKNOWN INDICATION
     Dosage: UNK
     Route: 065

REACTIONS (4)
  - Vulvovaginal dryness [Recovered/Resolved]
  - Sexual dysfunction [Not Recovered/Not Resolved]
  - Lactation disorder [Recovered/Resolved]
  - Suicidal ideation [Unknown]
